FAERS Safety Report 10477289 (Version 2)
Quarter: 2014Q3

REPORT INFORMATION
  Report Type: Spontaneous
  Country: HK (occurrence: HK)
  Receive Date: 20140926
  Receipt Date: 20140926
  Transmission Date: 20150326
  Serious: Yes (Hospitalization)
  Sender: FDA-Public Use
  Company Number: HK-JNJFOC-2005001826

PATIENT
  Age: 12 Month
  Sex: Male
  Weight: 9.2 kg

DRUGS (12)
  1. PARACETAMOL [Suspect]
     Active Substance: ACETAMINOPHEN
     Indication: UPPER RESPIRATORY TRACT INFECTION
     Dosage: DAILY DOSE TEXT: 125 MG Q6H ON DAYS 1 AND 2
     Route: 048
     Dates: start: 200308
  2. DIMENHYDRINATE. [Suspect]
     Active Substance: DIMENHYDRINATE
     Indication: VOMITING
     Dosage: DAILY DOSE TEXT: 7.5 MG, 2 DOSES DAY 3
     Route: 065
     Dates: start: 200308
  3. PHARMATON [Suspect]
     Active Substance: MINERALS\VITAMINS
     Indication: UPPER RESPIRATORY TRACT INFECTION
     Dosage: DAILY DOSE TEXT: 5 ML DAILY, 2 DOSES DAY 1
     Route: 065
     Dates: start: 200308
  4. PARACETAMOL [Suspect]
     Active Substance: ACETAMINOPHEN
     Route: 054
  5. DOMPERIDONE [Suspect]
     Active Substance: DOMPERIDONE
     Indication: DIARRHOEA
     Dosage: DAILY DOSE TEXT: 5 MG, 1 DOSE DAY 3
     Route: 065
     Dates: start: 200308
  6. KAOLIN [Suspect]
     Active Substance: KAOLIN
     Indication: DIARRHOEA
     Dosage: DAILY DOSE TEXT: 5 ML, 2 DOSES DAY 3.
     Route: 065
     Dates: start: 200308
  7. SACCHAROMYCES BOULARDII [Suspect]
     Active Substance: SACCHAROMYCES CEREVISIAE
     Indication: DIARRHOEA
     Dosage: DAILY DOSE TEXT: 250 MG/DAY, 1 DOSE ON DAY 3
     Route: 065
     Dates: start: 200308
  8. PARACETAMOL [Suspect]
     Active Substance: ACETAMINOPHEN
     Indication: UPPER RESPIRATORY TRACT INFECTION
     Dosage: DAILY DOSE TEXT: 250 MG/DAY ON DAYS 1-3
     Route: 054
     Dates: start: 200308
  9. CEFACLOR. [Suspect]
     Active Substance: CEFACLOR
     Indication: UPPER RESPIRATORY TRACT INFECTION
     Dosage: DAILY DOSE TEXT: 62.5 MG Q8H, 6 DOSES FROM DAY 1-2
     Route: 065
     Dates: start: 200308
  10. CHLORPHENAMINE [Suspect]
     Active Substance: CHLORPHENIRAMINE MALEATE
     Indication: UPPER RESPIRATORY TRACT INFECTION
     Dosage: DAILY DOSE TEXT: 1.5 MG Q6H, 4 DOSES DAY 1 AND DAY 2
     Route: 065
     Dates: start: 200308
  11. CEFTIBUTEN [Suspect]
     Active Substance: CEFTIBUTEN
     Indication: DIARRHOEA
     Dosage: DAILY DOSE TEXT: 125 MG, 1 DOSE DAY 3
     Route: 065
     Dates: start: 200308
  12. PARACETAMOL [Suspect]
     Active Substance: ACETAMINOPHEN
     Route: 048

REACTIONS (16)
  - Disseminated intravascular coagulation [Unknown]
  - Hypoglycaemia [Unknown]
  - Renal disorder [Unknown]
  - Sepsis [Unknown]
  - Left ventricular dysfunction [Unknown]
  - Shock [Unknown]
  - Urinary tract infection pseudomonal [Recovered/Resolved]
  - Lethargy [Unknown]
  - Renal failure [Recovering/Resolving]
  - Rhabdomyolysis [Unknown]
  - Metabolic acidosis [Unknown]
  - Ileus paralytic [Unknown]
  - Overdose [Unknown]
  - Hepatotoxicity [Unknown]
  - Dehydration [Unknown]
  - Gastroenteritis [Unknown]

NARRATIVE: CASE EVENT DATE: 2003
